FAERS Safety Report 4324778-0 (Version None)
Quarter: 2004Q1

REPORT INFORMATION
  Report Type: 
  Country: None (occurrence: None)
  Receive Date: 20040326
  Receipt Date: 20040316
  Transmission Date: 20041129
  Serious: Yes (Death, Hospitalization)
  Sender: FDA-Public Use
  Company Number: US-GLAXOSMITHKLINE-A0503381A

PATIENT
  Age: 66 Year
  Sex: Male

DRUGS (15)
  1. FLOLAN [Suspect]
     Indication: PULMONARY HYPERTENSION
     Route: 042
  2. TRACLEER [Suspect]
     Indication: PULMONARY HYPERTENSION
     Dosage: 125MG TWICE PER DAY
     Route: 048
     Dates: start: 20020101, end: 20031217
  3. MAGNESIUM OXIDE [Concomitant]
  4. LASIX [Concomitant]
  5. CELEXA [Concomitant]
  6. IRBESARTAN [Concomitant]
  7. KCL TAB [Concomitant]
  8. ADVAIR DISKUS 100/50 [Concomitant]
  9. PRAVASTATIN [Concomitant]
  10. ALBUTEROL SULFATE [Concomitant]
  11. ALPRAZOLAM [Concomitant]
  12. GABAPENTIN [Concomitant]
  13. ZOLPIDEM [Concomitant]
  14. ASPIRIN [Concomitant]
  15. FLONASE [Concomitant]

REACTIONS (9)
  - CHEST DISCOMFORT [None]
  - CYANOSIS [None]
  - DRUG INEFFECTIVE [None]
  - DYSPNOEA [None]
  - OEDEMA PERIPHERAL [None]
  - PULMONARY HYPERTENSION [None]
  - RASH [None]
  - RIGHT VENTRICULAR FAILURE [None]
  - VENOUS PRESSURE JUGULAR [None]
